FAERS Safety Report 18392544 (Version 1)
Quarter: 2020Q4

REPORT INFORMATION
  Report Type: Spontaneous
  Country: CN (occurrence: CN)
  Receive Date: 20201016
  Receipt Date: 20201016
  Transmission Date: 20210114
  Serious: Yes (Death)
  Sender: FDA-Public Use
  Company Number: CN-PFIZER INC-2020392458

PATIENT
  Age: 2 Year
  Sex: Female
  Weight: 10 kg

DRUGS (21)
  1. MEROPENEM. [Suspect]
     Active Substance: MEROPENEM
     Dosage: UNK
  2. METHYLPREDNISOLONE. [Suspect]
     Active Substance: METHYLPREDNISOLONE
     Indication: STEVENS-JOHNSON SYNDROME
     Dosage: 10 MG/KG, DAILY
  3. TIENAM [Suspect]
     Active Substance: CILASTATIN SODIUM\IMIPENEM
     Indication: TOXIC EPIDERMAL NECROLYSIS
  4. ITRACONAZOLE. [Suspect]
     Active Substance: ITRACONAZOLE
     Indication: TOXIC EPIDERMAL NECROLYSIS
  5. AZITHROMYCIN ANHYDROUS. [Suspect]
     Active Substance: AZITHROMYCIN ANHYDROUS
     Dosage: UNK
  6. METHYLPREDNISOLONE. [Suspect]
     Active Substance: METHYLPREDNISOLONE
     Indication: TOXIC EPIDERMAL NECROLYSIS
     Dosage: 2 MG/KG, DAILY, (TAPERING GRADUALLY)
  7. VANCOMYCIN [Suspect]
     Active Substance: VANCOMYCIN
     Indication: TOXIC EPIDERMAL NECROLYSIS
  8. TIENAM [Suspect]
     Active Substance: CILASTATIN SODIUM\IMIPENEM
     Indication: STEVENS-JOHNSON SYNDROME
     Dosage: UNK
  9. TIENAM [Suspect]
     Active Substance: CILASTATIN SODIUM\IMIPENEM
     Indication: ENTEROCOLITIS
  10. METRONIDAZOLE. [Suspect]
     Active Substance: METRONIDAZOLE
     Indication: ENTEROCOLITIS
  11. AZITHROMYCIN ANHYDROUS. [Suspect]
     Active Substance: AZITHROMYCIN ANHYDROUS
     Dosage: UNK
  12. VANCOMYCIN [Suspect]
     Active Substance: VANCOMYCIN
     Indication: STEVENS-JOHNSON SYNDROME
     Dosage: UNK
  13. TIENAM [Suspect]
     Active Substance: CILASTATIN SODIUM\IMIPENEM
     Indication: BRONCHIOLITIS
  14. ITRACONAZOLE. [Suspect]
     Active Substance: ITRACONAZOLE
     Indication: ENTEROCOLITIS
  15. METRONIDAZOLE. [Suspect]
     Active Substance: METRONIDAZOLE
     Indication: STEVENS-JOHNSON SYNDROME
     Dosage: UNK
  16. ITRACONAZOLE. [Suspect]
     Active Substance: ITRACONAZOLE
     Indication: BRONCHIOLITIS
  17. ITRACONAZOLE. [Suspect]
     Active Substance: ITRACONAZOLE
     Indication: STEVENS-JOHNSON SYNDROME
  18. METRONIDAZOLE. [Suspect]
     Active Substance: METRONIDAZOLE
     Indication: TOXIC EPIDERMAL NECROLYSIS
  19. METRONIDAZOLE. [Suspect]
     Active Substance: METRONIDAZOLE
     Indication: BRONCHIOLITIS
  20. IMMUNOGLOBULIN HUMAN NORMAL [Suspect]
     Active Substance: HUMAN IMMUNOGLOBULIN G
     Indication: STEVENS-JOHNSON SYNDROME
     Dosage: UNK, (1 G/KG/DY)
  21. TIENAM [Suspect]
     Active Substance: CILASTATIN SODIUM\IMIPENEM
     Indication: HYPOPROTEINAEMIA

REACTIONS (1)
  - Drug ineffective [Fatal]
